FAERS Safety Report 7155789-8 (Version None)
Quarter: 2010Q4

REPORT INFORMATION
  Report Type: 
  Country: None (occurrence: None)
  Receive Date: 20101214
  Receipt Date: 20101130
  Transmission Date: 20110411
  Serious: No
  Sender: FDA-Public Use
  Company Number: US-B.I. PHARMACEUTICALS,INC./RIDGEFIELD-2010-BP-13521BP

PATIENT
  Age: 74 Year
  Sex: Female

DRUGS (15)
  1. ATROVENT HFA [Suspect]
     Indication: CHRONIC OBSTRUCTIVE PULMONARY DISEASE
     Dates: start: 20100801
  2. BROVANA [Suspect]
     Indication: CHRONIC OBSTRUCTIVE PULMONARY DISEASE
     Route: 055
     Dates: start: 20101001
  3. ALBUTEROL [Concomitant]
     Indication: CHRONIC OBSTRUCTIVE PULMONARY DISEASE
     Dates: start: 20100801
  4. PROAIR HFA [Concomitant]
     Indication: CHRONIC OBSTRUCTIVE PULMONARY DISEASE
     Dates: start: 20100801
  5. VERAPAMIL [Concomitant]
  6. ATENOLOL [Concomitant]
  7. PRILOSEC [Concomitant]
     Dates: start: 20100201
  8. LORAZEPAM [Concomitant]
  9. FOSAMAX [Concomitant]
     Dates: start: 20060101
  10. THEOPHYLLINE [Concomitant]
     Dates: start: 20050101
  11. FEMARA [Concomitant]
     Dates: start: 20090101
  12. CALTRATE [Concomitant]
  13. OXYGEN [Concomitant]
  14. VITAMIN-MINERAL COMPOUND TAB [Concomitant]
  15. MEDICATION NOT OTHERWISE SPECIFIED [Concomitant]

REACTIONS (1)
  - TOOTH DISCOLOURATION [None]
